FAERS Safety Report 6120724-8 (Version None)
Quarter: 2009Q1

REPORT INFORMATION
  Report Type: 
  Country: None (occurrence: None)
  Receive Date: 20090312
  Receipt Date: 20090227
  Transmission Date: 20090719
  Serious: Yes (Life-Threatening)
  Sender: FDA-Public Use
  Company Number: 6049382

PATIENT
  Age: 50 Year
  Sex: Female

DRUGS (2)
  1. LEVOTHYROXINE SODIUM [Suspect]
     Indication: HYPOTHYROIDISM
     Dosage: 562.5 MCG (187.5 MCG, 3 IN 1 D)
     Dates: start: 20080401, end: 20081202
  2. LORAZEPAM [Suspect]
     Indication: SLEEP DISORDER
     Dosage: 2 MG (2 MG, 2 IN 1 D) ORAL
     Route: 048
     Dates: start: 20081015, end: 20081202

REACTIONS (7)
  - AGITATION [None]
  - CONDITION AGGRAVATED [None]
  - NERVOUSNESS [None]
  - OVERDOSE [None]
  - SELF-MEDICATION [None]
  - SLEEP DISORDER [None]
  - TACHYCARDIA [None]
